FAERS Safety Report 8593886-0 (Version None)
Quarter: 2012Q3

REPORT INFORMATION
  Report Type: 
  Country: None (occurrence: None)
  Receive Date: 20120814
  Receipt Date: 20120807
  Transmission Date: 20120928
  Serious: Yes (Hospitalization)
  Sender: FDA-Public Use
  Company Number: FR-PFIZER INC-2012191474

PATIENT
  Age: 52 Year
  Sex: Female

DRUGS (12)
  1. OFLOXACIN [Suspect]
     Indication: INFECTION
     Dosage: UNK
     Route: 048
     Dates: start: 20120604, end: 20120717
  2. ALPRAZOLAM [Concomitant]
     Dosage: UNK
  3. NEXIUM [Concomitant]
     Dosage: UNK
  4. ZOLPIDEM [Concomitant]
     Dosage: UNK
  5. SODIUM BICARBONATE [Concomitant]
     Dosage: UNK
  6. HUMALOG [Concomitant]
     Dosage: UNK
  7. LANTUS [Concomitant]
     Dosage: UNK
  8. ZYVOX [Suspect]
     Indication: INFECTION
     Dosage: 600 MG, 2X/DAY
     Route: 048
     Dates: start: 20120604, end: 20120714
  9. PROGRAF [Concomitant]
     Dosage: UNK
  10. CELL CEPT [Concomitant]
     Dosage: UNK
  11. PREDNISOLONE [Concomitant]
     Dosage: UNK
  12. SINGULAIR [Concomitant]
     Dosage: UNK

REACTIONS (3)
  - CONDITION AGGRAVATED [None]
  - ANAEMIA [None]
  - THROMBOCYTOPENIA [None]
